FAERS Safety Report 12439930 (Version 2)
Quarter: 2016Q3

REPORT INFORMATION
  Report Type: Report from Study
  Country: FR (occurrence: FR)
  Receive Date: 20160606
  Receipt Date: 20160907
  Transmission Date: 20161109
  Serious: Yes (Other)
  Sender: FDA-Public Use
  Company Number: PHHY2016FR076731

PATIENT
  Age: 62 Year
  Sex: Male

DRUGS (17)
  1. MYFORTIC [Suspect]
     Active Substance: MYCOPHENOLATE SODIUM
     Dosage: 360 MG, QD
     Route: 065
     Dates: start: 20150522, end: 20150709
  2. PROGRAF [Suspect]
     Active Substance: TACROLIMUS\TACROLIMUS ANHYDROUS
     Indication: IMMUNOSUPPRESSANT DRUG THERAPY
     Dosage: 8 MG, QD
     Route: 065
     Dates: start: 20140901, end: 20140902
  3. CORTANCYL [Concomitant]
     Active Substance: PREDNISONE
     Dosage: 2.5 MG, QD
     Route: 065
     Dates: start: 20150429, end: 20151119
  4. MYFORTIC [Suspect]
     Active Substance: MYCOPHENOLATE SODIUM
     Indication: IMMUNOSUPPRESSANT DRUG THERAPY
     Dosage: 720 MG, QD
     Route: 065
     Dates: start: 20140905, end: 20150521
  5. PROGRAF [Suspect]
     Active Substance: TACROLIMUS\TACROLIMUS ANHYDROUS
     Dosage: 2.5 MG, QD
     Route: 065
     Dates: start: 20160305, end: 20160322
  6. CORTANCYL [Concomitant]
     Active Substance: PREDNISONE
     Indication: IMMUNOSUPPRESSANT DRUG THERAPY
     Dosage: 5 MG, QD
     Route: 065
     Dates: start: 20140125, end: 20150428
  7. CERTICAN [Suspect]
     Active Substance: EVEROLIMUS
     Indication: LIVER TRANSPLANT
     Dosage: 1.5 MG, QD
     Route: 048
     Dates: start: 20151205, end: 20160112
  8. PROGRAF [Suspect]
     Active Substance: TACROLIMUS\TACROLIMUS ANHYDROUS
     Indication: LIVER TRANSPLANT
     Dosage: 10 MG, QD
     Route: 065
     Dates: start: 20140125, end: 20140831
  9. CERTICAN [Suspect]
     Active Substance: EVEROLIMUS
     Indication: IMMUNOSUPPRESSANT DRUG THERAPY
  10. IMUREL [Concomitant]
     Active Substance: AZATHIOPRINE SODIUM
     Indication: IMMUNOSUPPRESSANT DRUG THERAPY
     Dosage: 100 MG, QD
     Route: 065
     Dates: start: 20150718, end: 20150906
  11. CERTICAN [Suspect]
     Active Substance: EVEROLIMUS
     Indication: PROPHYLAXIS AGAINST TRANSPLANT REJECTION
  12. MYFORTIC [Suspect]
     Active Substance: MYCOPHENOLATE SODIUM
     Indication: LIVER TRANSPLANT
     Dosage: 720 MG, QD
     Route: 065
     Dates: start: 20140111, end: 20140811
  13. PROGRAF [Suspect]
     Active Substance: TACROLIMUS\TACROLIMUS ANHYDROUS
     Dosage: 6 MG, QD
     Route: 065
     Dates: start: 20140903, end: 20151119
  14. PROGRAF [Suspect]
     Active Substance: TACROLIMUS\TACROLIMUS ANHYDROUS
     Dosage: 4 MG, QD
     Route: 065
     Dates: start: 20151120, end: 20151204
  15. PROGRAF [Suspect]
     Active Substance: TACROLIMUS\TACROLIMUS ANHYDROUS
     Dosage: 2 MG, QD
     Route: 065
     Dates: start: 20160113, end: 20160304
  16. PROGRAF [Suspect]
     Active Substance: TACROLIMUS\TACROLIMUS ANHYDROUS
     Dosage: 2 MG, QD
     Route: 065
     Dates: start: 20160323
  17. CORTANCYL [Concomitant]
     Active Substance: PREDNISONE
     Dosage: 40 MG, QD
     Route: 065
     Dates: start: 20151120

REACTIONS (2)
  - Chronic kidney disease [Not Recovered/Not Resolved]
  - Back pain [Not Recovered/Not Resolved]

NARRATIVE: CASE EVENT DATE: 20150909
